FAERS Safety Report 16570029 (Version 1)
Quarter: 2019Q3

REPORT INFORMATION
  Report Type: Report from Study
  Country: JP (occurrence: JP)
  Receive Date: 20190715
  Receipt Date: 20190715
  Transmission Date: 20191004
  Serious: Yes (Other)
  Sender: FDA-Public Use
  Company Number: JP-AMGEN-JPNCT2019110963

PATIENT
  Age: 66 Year
  Sex: Male

DRUGS (1)
  1. DARBEPOETIN ALFA [Suspect]
     Active Substance: DARBEPOETIN ALFA
     Indication: NEPHROGENIC ANAEMIA
     Dosage: UNK
     Route: 065
     Dates: start: 20180709, end: 20181217

REACTIONS (1)
  - Retinal haemorrhage [Recovered/Resolved]

NARRATIVE: CASE EVENT DATE: 20181109
